FAERS Safety Report 25734665 (Version 1)
Quarter: 2025Q3

REPORT INFORMATION
  Report Type: Spontaneous
  Country: EU (occurrence: EU)
  Receive Date: 20250828
  Receipt Date: 20250828
  Transmission Date: 20251021
  Serious: Yes (Hospitalization)
  Sender: BAXTER
  Company Number: None

PATIENT
  Age: 49 Year
  Sex: Female

DRUGS (6)
  1. PROPOFOL [Suspect]
     Active Substance: PROPOFOL
     Indication: Surgery
     Route: 042
     Dates: start: 20250814, end: 20250814
  2. LIDOCAINE [Suspect]
     Active Substance: LIDOCAINE
     Indication: Surgery
     Route: 042
     Dates: start: 20250814, end: 20250814
  3. KETAMINE [Suspect]
     Active Substance: KETAMINE
     Indication: Surgery
     Route: 042
     Dates: start: 20250814, end: 20250814
  4. ATRACURIUM [Suspect]
     Active Substance: ATRACURIUM
     Indication: Surgery
     Route: 042
     Dates: start: 20250814, end: 20250814
  5. DEXAMETHASONE [Suspect]
     Active Substance: DEXAMETHASONE
     Indication: Surgery
     Route: 042
     Dates: start: 20250814, end: 20250814
  6. SUFENTANIL [Suspect]
     Active Substance: SUFENTANIL
     Indication: Surgery
     Route: 042
     Dates: start: 20250814, end: 20250814

REACTIONS (1)
  - Urticaria [Recovered/Resolved]

NARRATIVE: CASE EVENT DATE: 20250814
